FAERS Safety Report 4274685-7 (Version None)
Quarter: 2004Q1

REPORT INFORMATION
  Report Type: 
  Country: None (occurrence: None)
  Receive Date: 20040115
  Receipt Date: 20031226
  Transmission Date: 20041129
  Serious: Yes (Hospitalization)
  Sender: FDA-Public Use
  Company Number: JP_040102445

PATIENT
  Age: 77 Year
  Sex: Male
  Weight: 43 kg

DRUGS (10)
  1. GEMZAR [Suspect]
     Indication: NON-SMALL CELL LUNG CANCER
     Dosage: 900 MG/M2/OTHER
     Route: 050
     Dates: start: 20000831, end: 20001114
  2. UFT [Concomitant]
  3. THEO-DUR [Concomitant]
  4. MUCODYNE (CARBOCISTEINE) [Concomitant]
  5. BISOLVON (BROMHEXINE HYDROCHLORIDE) [Concomitant]
  6. MARZULENE S [Concomitant]
  7. ASPIRIN [Concomitant]
  8. TICLOPIDINE HCL [Concomitant]
  9. ISOSORBIDE MONONITRATE [Concomitant]
  10. ZANTAC [Concomitant]

REACTIONS (5)
  - BRONCHOPNEUMONIA [None]
  - DISEASE PROGRESSION [None]
  - NEUTROPHIL COUNT DECREASED [None]
  - PYREXIA [None]
  - WHITE BLOOD CELL COUNT DECREASED [None]
